FAERS Safety Report 18924079 (Version 1)
Quarter: 2021Q1

REPORT INFORMATION
  Report Type: Spontaneous
  Country: US (occurrence: US)
  Receive Date: 20210222
  Receipt Date: 20210222
  Transmission Date: 20210420
  Serious: No
  Sender: FDA-Public Use
  Company Number: US-INSUD PHARMA-2102US00093

PATIENT

DRUGS (1)
  1. SLYND [Suspect]
     Active Substance: DROSPIRENONE
     Indication: ANAEMIA
     Dosage: UNK, QD
     Route: 048

REACTIONS (2)
  - Intentional product use issue [Unknown]
  - Menorrhagia [Not Recovered/Not Resolved]
